FAERS Safety Report 24936429 (Version 4)
Quarter: 2025Q2

REPORT INFORMATION
  Report Type: Other
  Country: US (occurrence: US)
  Receive Date: 20250206
  Receipt Date: 20250407
  Transmission Date: 20250716
  Serious: Yes (Other)
  Sender: TRAVERE THERAPEUTICS
  Company Number: US-TRAVERE-2025TVT00124

PATIENT
  Age: 57 Year
  Sex: Male

DRUGS (8)
  1. FILSPARI [Suspect]
     Active Substance: SPARSENTAN
     Indication: IgA nephropathy
     Dosage: LOT NUMBER: 1976071 AND EXPIRY DATE: 31-MAY-2026
     Route: 048
     Dates: start: 20241120
  2. AMLODIPINE [Concomitant]
     Active Substance: AMLODIPINE BESYLATE
  3. MAGNESIUM OXIDE [Concomitant]
     Active Substance: MAGNESIUM OXIDE
  4. MYCOPHENOLIC ACID [Concomitant]
     Active Substance: MYCOPHENOLIC ACID
  5. ROSUVASTATIN [Concomitant]
     Active Substance: ROSUVASTATIN
  6. SERTRALINE [Concomitant]
     Active Substance: SERTRALINE HYDROCHLORIDE
  7. TACROLIMUS [Concomitant]
     Active Substance: TACROLIMUS
  8. BUDESONIDE [Concomitant]
     Active Substance: BUDESONIDE

REACTIONS (17)
  - Abdominal pain upper [Recovering/Resolving]
  - Flank pain [Recovering/Resolving]
  - Insomnia [None]
  - Pain [Unknown]
  - Nausea [Unknown]
  - Influenza [Unknown]
  - Rhinorrhoea [Unknown]
  - Cough [Unknown]
  - Respiratory tract congestion [Unknown]
  - Blood sodium decreased [Unknown]
  - Blood bicarbonate decreased [Unknown]
  - Blood urea increased [Unknown]
  - Blood creatinine increased [Unknown]
  - Glomerular filtration rate increased [Unknown]
  - Blood glucose increased [Unknown]
  - White blood cell disorder [Unknown]
  - Haematuria [Unknown]
